FAERS Safety Report 4976130-2 (Version None)
Quarter: 2006Q2

REPORT INFORMATION
  Report Type: 
  Country: None (occurrence: None)
  Receive Date: 20060411
  Receipt Date: 20060405
  Transmission Date: 20061013
  Serious: Yes (Other)
  Sender: FDA-Public Use
  Company Number: 007119

PATIENT
  Sex: Female

DRUGS (6)
  1. AYGESTIN [Suspect]
     Dosage: ORAL
     Route: 048
     Dates: start: 19860101, end: 20010701
  2. ESTROPIPATE [Suspect]
     Dosage: ORAL
     Route: 048
     Dates: start: 19860101, end: 20010701
  3. PROVERA [Suspect]
     Dosage: ORAL
     Route: 048
     Dates: start: 19860101, end: 20010701
  4. PREMARIN [Suspect]
     Dosage: ORAL
     Route: 048
     Dates: start: 19860101, end: 20010701
  5. OGEN [Suspect]
     Dosage: ORAL
     Route: 048
     Dates: start: 19860101, end: 20010701
  6. MEDROXYPROGESTERONE [Suspect]
     Dosage: ORAL
     Route: 048
     Dates: start: 19860101, end: 20010701

REACTIONS (1)
  - BREAST CANCER FEMALE [None]
